FAERS Safety Report 12735054 (Version 6)
Quarter: 2018Q1

REPORT INFORMATION
  Report Type: Spontaneous
  Country: US (occurrence: US)
  Receive Date: 20160912
  Receipt Date: 20180220
  Transmission Date: 20180508
  Serious: Yes (Hospitalization, Disabling, Other)
  Sender: FDA-Public Use
  Company Number: US-PFIZER INC-2016422152

PATIENT
  Age: 49 Year
  Sex: Female
  Weight: 48 kg

DRUGS (8)
  1. GEODON [Suspect]
     Active Substance: ZIPRASIDONE HYDROCHLORIDE\ZIPRASIDONE MESYLATE
     Indication: POST-TRAUMATIC STRESS DISORDER
     Dosage: 40 MG, 1X/DAY, AT NIGHT
     Route: 048
     Dates: end: 2015
  2. GEODON [Suspect]
     Active Substance: ZIPRASIDONE HYDROCHLORIDE\ZIPRASIDONE MESYLATE
     Indication: TREMOR
     Dosage: 20 MG, 1X/DAY, AT NIGHT
     Route: 048
  3. GEODON [Suspect]
     Active Substance: ZIPRASIDONE HYDROCHLORIDE\ZIPRASIDONE MESYLATE
     Indication: NIGHTMARE
  4. VENLAFAXINE [Concomitant]
     Active Substance: VENLAFAXINE HYDROCHLORIDE
     Indication: POST-TRAUMATIC STRESS DISORDER
     Dosage: 150 MG, 1X/DAY (MORNING )
     Route: 048
     Dates: start: 2013
  5. GEODON [Suspect]
     Active Substance: ZIPRASIDONE HYDROCHLORIDE\ZIPRASIDONE MESYLATE
     Indication: ANXIETY
     Dosage: 80 MG, UNK
     Dates: start: 2015, end: 201707
  6. CLONAZEPAM. [Concomitant]
     Active Substance: CLONAZEPAM
     Indication: POST-TRAUMATIC STRESS DISORDER
     Dosage: 1 MG, 1X/DAY (MORNING)
     Dates: start: 2013
  7. GEODON [Suspect]
     Active Substance: ZIPRASIDONE HYDROCHLORIDE\ZIPRASIDONE MESYLATE
     Indication: ESSENTIAL TREMOR
  8. PRAZOSIN. [Concomitant]
     Active Substance: PRAZOSIN
     Dosage: 2 MG, 1X/DAY (NIGHT)

REACTIONS (31)
  - Off label use [Unknown]
  - Muscle rigidity [Recovered/Resolved]
  - Drug ineffective for unapproved indication [Not Recovered/Not Resolved]
  - Balance disorder [Recovered/Resolved]
  - Drooling [Unknown]
  - Dysphagia [Unknown]
  - Muscle atrophy [Recovered/Resolved]
  - Asthenia [Recovered/Resolved]
  - Ataxia [Unknown]
  - Dyskinesia [Not Recovered/Not Resolved]
  - Gait disturbance [Not Recovered/Not Resolved]
  - Motor dysfunction [Recovered/Resolved]
  - Weight decreased [Recovered/Resolved]
  - Extrapyramidal disorder [Recovered/Resolved]
  - Tongue oedema [Recovered/Resolved]
  - Feeling abnormal [Recovered/Resolved]
  - Hyperhidrosis [Unknown]
  - Choking [Unknown]
  - Amnesia [Recovered/Resolved]
  - Confusional state [Recovered/Resolved]
  - Substance-induced psychotic disorder [Recovered/Resolved]
  - Tremor [Recovered/Resolved]
  - Gait inability [Not Recovered/Not Resolved]
  - Loss of personal independence in daily activities [Not Recovered/Not Resolved]
  - Cerebral palsy [Unknown]
  - Speech disorder [Recovering/Resolving]
  - Decreased appetite [Recovered/Resolved]
  - Dystonia [Recovering/Resolving]
  - Withdrawal syndrome [Unknown]
  - Weight increased [Unknown]
  - Insomnia [Unknown]

NARRATIVE: CASE EVENT DATE: 2013
